FAERS Safety Report 9216323 (Version 1)
Quarter: 2013Q2

REPORT INFORMATION
  Report Type: Spontaneous
  Country: AU (occurrence: None)
  Receive Date: 20130403
  Receipt Date: 20130403
  Transmission Date: 20140414
  Serious: Yes (Other)
  Sender: FDA-Public Use
  Company Number: IPC201304-000123

PATIENT
  Sex: Male

DRUGS (1)
  1. FUROSEMIDE [Suspect]
     Dosage: 1 TABLET EVERY DAY (STRENGTH: 40 MG), ORAL
     Route: 048

REACTIONS (2)
  - Fluid retention [None]
  - Oedema peripheral [None]
